FAERS Safety Report 20466544 (Version 4)
Quarter: 2022Q2

REPORT INFORMATION
  Report Type: Report from Study
  Country: CA (occurrence: CA)
  Receive Date: 20220213
  Receipt Date: 20220412
  Transmission Date: 20220720
  Serious: Yes (Other)
  Sender: FDA-Public Use
  Company Number: CA-ABBVIE-22K-028-4272210-00

PATIENT
  Sex: Female

DRUGS (2)
  1. RINVOQ [Suspect]
     Active Substance: UPADACITINIB
     Indication: Rheumatoid arthritis
     Route: 048
     Dates: start: 20200625
  2. RINVOQ [Suspect]
     Active Substance: UPADACITINIB
     Route: 048
     Dates: start: 20220325

REACTIONS (9)
  - Systemic lupus erythematosus [Unknown]
  - Interstitial lung disease [Unknown]
  - Lung disorder [Not Recovered/Not Resolved]
  - Productive cough [Not Recovered/Not Resolved]
  - Haemoptysis [Recovered/Resolved]
  - Arthralgia [Unknown]
  - Immune system disorder [Unknown]
  - Therapeutic product effect incomplete [Unknown]
  - Psoriatic arthropathy [Recovering/Resolving]
